FAERS Safety Report 7549375-5 (Version None)
Quarter: 2011Q2

REPORT INFORMATION
  Report Type: 
  Country: None (occurrence: None)
  Receive Date: 20110615
  Receipt Date: 20031106
  Transmission Date: 20111010
  Serious: Yes (Death)
  Sender: FDA-Public Use
  Company Number: PHHO2003JP11773

PATIENT
  Sex: Male
  Weight: 56 kg

DRUGS (5)
  1. DILTIAZEM HCL [Concomitant]
     Indication: HYPERTENSION
  2. NITOROL [Concomitant]
     Indication: ANGINA PECTORIS
  3. LASIX [Concomitant]
     Indication: HYPERTENSION
  4. ALLOPURINOL [Concomitant]
     Indication: HYPERURICAEMIA
  5. LOCHOLEST [Suspect]
     Indication: HYPERCHOLESTEROLAEMIA
     Dosage: 20 MG, PER DAY
     Route: 048
     Dates: start: 20010324

REACTIONS (1)
  - COMPLETED SUICIDE [None]
